FAERS Safety Report 6471291-0 (Version None)
Quarter: 2009Q4

REPORT INFORMATION
  Report Type: 
  Country: None (occurrence: None)
  Receive Date: 20091203
  Receipt Date: 20080423
  Transmission Date: 20100525
  Serious: Yes (Hospitalization, Other)
  Sender: FDA-Public Use
  Company Number: DE-ELI_LILLY_AND_COMPANY-DE200802005722

PATIENT
  Sex: Male

DRUGS (17)
  1. CYMBALTA [Suspect]
     Indication: DIABETIC NEUROPATHY
     Dosage: 30 MG, DAILY (1/D)
     Route: 065
     Dates: start: 20071002
  2. CYMBALTA [Suspect]
     Dosage: 60 MG, DAILY (1/D)
     Route: 065
     Dates: start: 20071008
  3. CYMBALTA [Suspect]
     Dosage: 60 MG, THREE TO FOUR TIMES DAILY
     Route: 065
  4. CYMBALTA [Suspect]
     Dosage: 60 MG, 4/D
     Route: 065
  5. HUMALOG [Concomitant]
     Dosage: 5 U, EACH MORNING
     Route: 065
  6. HUMALOG [Concomitant]
     Dosage: 5 U MIDDAY
     Route: 065
  7. HUMALOG [Concomitant]
     Dosage: 4 U, EACH EVENING
     Route: 065
  8. HUMALOG [Concomitant]
     Dosage: UNK, UNKNOWN
     Route: 065
  9. DILATREND [Concomitant]
     Dosage: 25 MG, EACH MORNING
     Route: 065
  10. VESICARE [Concomitant]
     Dosage: 25 MG, EACH MORNING
     Route: 065
  11. VESICARE [Concomitant]
     Dosage: 5 MG, EACH MORNING
     Route: 065
  12. MESCORIT [Concomitant]
     Dosage: 850 MG, EACH MORNING
     Route: 065
  13. LISINOPRIL AND HYDROCHLOROTHIAZIDE [Concomitant]
     Dosage: UNK, UNKNOWN
     Route: 065
  14. TILIDIN [Concomitant]
     Dosage: 10 MG, 3/D
     Route: 065
  15. TILIDIN [Concomitant]
     Dosage: UNK, UNKNOWN
     Route: 065
  16. LANTUS [Concomitant]
     Dosage: 25 U, EACH EVENING
     Route: 065
  17. LANTUS [Concomitant]
     Dosage: UNK, UNKNOWN
     Route: 065

REACTIONS (10)
  - DELIRIUM [None]
  - DISORIENTATION [None]
  - DISTURBANCE IN ATTENTION [None]
  - DIZZINESS [None]
  - ELECTROENCEPHALOGRAM ABNORMAL [None]
  - GAIT DISTURBANCE [None]
  - HYPERGLYCAEMIA [None]
  - INTENTIONAL OVERDOSE [None]
  - MYOCLONUS [None]
  - RESTLESS LEGS SYNDROME [None]
